FAERS Safety Report 17751718 (Version 1)
Quarter: 2020Q2

REPORT INFORMATION
  Report Type: Spontaneous
  Country: FR (occurrence: FR)
  Receive Date: 20200506
  Receipt Date: 20200506
  Transmission Date: 20200714
  Serious: Yes (Other)
  Sender: FDA-Public Use
  Company Number: NVSC2020FR120436

PATIENT
  Age: 70 Year
  Sex: Female
  Weight: 48.5 kg

DRUGS (10)
  1. ZITHROMAX [Suspect]
     Active Substance: AZITHROMYCIN DIHYDRATE
     Indication: ATYPICAL MYCOBACTERIAL INFECTION
     Dosage: 250 MG, QD
     Route: 048
     Dates: start: 20190727, end: 20191129
  2. LAMPRENE [Suspect]
     Active Substance: CLOFAZIMINE
     Indication: ATYPICAL MYCOBACTERIAL INFECTION
     Dosage: 100 MG, QD
     Route: 048
     Dates: start: 20190727, end: 20191129
  3. PLAQUENIL [Suspect]
     Active Substance: HYDROXYCHLOROQUINE SULFATE
     Indication: SJOGREN^S SYNDROME
     Dosage: 1 DF, QD
     Route: 048
     Dates: end: 20191129
  4. PROPRANOLOL [Concomitant]
     Active Substance: PROPRANOLOL HYDROCHLORIDE
     Indication: PRODUCT USED FOR UNKNOWN INDICATION
     Dosage: UNK
     Route: 065
  5. NOXAFIL [Suspect]
     Active Substance: POSACONAZOLE
     Indication: ATYPICAL MYCOBACTERIAL INFECTION
     Dosage: 300 MG, QD
     Route: 048
     Dates: start: 20191106, end: 20191129
  6. TRAMADOL. [Concomitant]
     Active Substance: TRAMADOL
     Indication: PRODUCT USED FOR UNKNOWN INDICATION
     Dosage: UNK
     Route: 065
  7. URSODESOXYCHOLIC ACID [Concomitant]
     Active Substance: URSODIOL
     Indication: PRODUCT USED FOR UNKNOWN INDICATION
     Dosage: UNK
     Route: 065
  8. ETHAMBUTOL [Concomitant]
     Active Substance: ETHAMBUTOL HYDROCHLORIDE
     Indication: PRODUCT USED FOR UNKNOWN INDICATION
     Dosage: UNK
     Route: 065
  9. PANTOPRAZOLE [Concomitant]
     Active Substance: PANTOPRAZOLE
     Indication: PRODUCT USED FOR UNKNOWN INDICATION
     Dosage: UNK
     Route: 065
  10. ALDACTONE [Concomitant]
     Active Substance: SPIRONOLACTONE
     Indication: PRODUCT USED FOR UNKNOWN INDICATION
     Dosage: UNK
     Route: 065

REACTIONS (1)
  - Electrocardiogram QT prolonged [Recovered/Resolved]

NARRATIVE: CASE EVENT DATE: 20191129
